FAERS Safety Report 23309577 (Version 2)
Quarter: 2023Q4

REPORT INFORMATION
  Report Type: Spontaneous
  Country: CA (occurrence: CA)
  Receive Date: 20231218
  Receipt Date: 20231225
  Transmission Date: 20240110
  Serious: Yes (Other)
  Sender: FDA-Public Use
  Company Number: CA-PFIZER INC-202201307598

PATIENT
  Age: 68 Year
  Sex: Female
  Weight: 93 kg

DRUGS (17)
  1. RUXIENCE [Suspect]
     Active Substance: RITUXIMAB-PVVR
     Indication: Granulomatosis with polyangiitis
     Dosage: 1 G, (AT WEEK 0 AND 1G 2 WEEKS LATER)
     Route: 042
     Dates: start: 20221115, end: 20221115
  2. RUXIENCE [Suspect]
     Active Substance: RITUXIMAB-PVVR
     Indication: Rheumatoid arthritis
     Dosage: 1 G, EVERY 2 WEEK
     Route: 042
     Dates: start: 20221115, end: 20221129
  3. RUXIENCE [Suspect]
     Active Substance: RITUXIMAB-PVVR
     Dosage: 1 G, (AT WEEK 0 AND 1G 2 WEEKS LATER)
     Route: 042
     Dates: start: 20221129
  4. RUXIENCE [Suspect]
     Active Substance: RITUXIMAB-PVVR
     Dosage: 500 MG X 1 (RETREATMENT)
  5. RUXIENCE [Suspect]
     Active Substance: RITUXIMAB-PVVR
     Dosage: 500 MG, SINGLE DOSE
     Route: 042
     Dates: start: 20230529, end: 20230529
  6. ALENDRONATE [Concomitant]
     Active Substance: ALENDRONATE SODIUM
     Dosage: 70 MG, DAILY
  7. ELDERBERRY EXTRACT [Concomitant]
     Dosage: UNK
  8. ELDERBERRY EXTRACT [Concomitant]
     Dosage: 1 DF, 1 TABLET DAILY
  9. HUMALOG [Concomitant]
     Active Substance: INSULIN LISPRO
     Dosage: UNK
  10. HUMALOG [Concomitant]
     Active Substance: INSULIN LISPRO
     Dosage: 1 DF, 52 UNITS BID
  11. MAGNESIUM [Concomitant]
     Active Substance: MAGNESIUM
     Dosage: 40 MG, DAILY
  12. PREDNISONE [Concomitant]
     Active Substance: PREDNISONE
     Dosage: 60 MG
     Dates: start: 202110
  13. VITAMIN B3 [Concomitant]
     Active Substance: NIACIN
     Dosage: UNK
  14. VITAMIN B12 [Concomitant]
     Active Substance: CYANOCOBALAMIN
     Dosage: UNK
  15. ASCORBIC ACID [Concomitant]
     Active Substance: ASCORBIC ACID
     Dosage: UNK
  16. VITAMIN D3 [Concomitant]
     Active Substance: CHOLECALCIFEROL
     Dosage: UNK
  17. ZINC [Concomitant]
     Active Substance: PYRITHIONE ZINC\ZINC\ZINC CHLORIDE
     Dosage: UNK

REACTIONS (11)
  - Breast cancer [Unknown]
  - Chills [Recovering/Resolving]
  - Nausea [Recovering/Resolving]
  - Vomiting [Recovering/Resolving]
  - Lymphoedema [Not Recovered/Not Resolved]
  - Skin lesion [Not Recovered/Not Resolved]
  - Off label use [Unknown]
  - Off label use [Unknown]
  - Product use issue [Unknown]
  - Off label use [Unknown]
  - Intentional product use issue [Unknown]

NARRATIVE: CASE EVENT DATE: 20220101
